FAERS Safety Report 4746751-0 (Version None)
Quarter: 2005Q3

REPORT INFORMATION
  Report Type: 
  Country: None (occurrence: None)
  Receive Date: 20050817
  Receipt Date: 20050711
  Transmission Date: 20060218
  Serious: Yes (Other)
  Sender: FDA-Public Use
  Company Number: PHBS2005JP09922

PATIENT
  Sex: Male

DRUGS (2)
  1. TEGRETOL [Suspect]
     Indication: MEDICATION ERROR
     Dosage: 12 X 200 MG TABLETS
     Route: 048
  2. TEGRETOL [Suspect]
     Route: 048

REACTIONS (3)
  - GASTRIC LAVAGE [None]
  - OVERDOSE [None]
  - SUICIDE ATTEMPT [None]
